FAERS Safety Report 5187330-3 (Version None)
Quarter: 2006Q4

REPORT INFORMATION
  Report Type: 
  Country: None (occurrence: None)
  Receive Date: 20061213
  Receipt Date: 20061201
  Transmission Date: 20070319
  Serious: Yes (Hospitalization, Other)
  Sender: FDA-Public Use
  Company Number: PAR_1139_2006

PATIENT
  Age: 48 Year
  Sex: Male
  Weight: 71.6683 kg

DRUGS (10)
  1. IBUPROFEN [Suspect]
     Dosage: DF
  2. BAYER PLUS EXTRA STRENGTH [Suspect]
     Indication: CHEST PAIN
     Dosage: 1000 MG PO
     Route: 048
     Dates: start: 20060625, end: 20060626
  3. BAYER PLUS EXTRA STRENGTH [Suspect]
     Indication: PAIN IN JAW
     Dosage: 1000 MG PO
     Route: 048
     Dates: start: 20060625, end: 20060626
  4. BAYER PLUS EXTRA STRENGTH [Suspect]
     Indication: CHEST PAIN
     Dosage: 1000 MG PO
     Route: 048
     Dates: start: 20060630
  5. BAYER PLUS EXTRA STRENGTH [Suspect]
     Indication: PAIN IN JAW
     Dosage: 1000 MG PO
     Route: 048
     Dates: start: 20060630
  6. BAYER PLUS EXTRA STRENGTH [Suspect]
     Indication: CHEST PAIN
     Dosage: 325 MG PO
     Route: 048
  7. BAYER PLUS EXTRA STRENGTH [Suspect]
     Indication: PAIN IN JAW
     Dosage: 325 MG PO
     Route: 048
  8. TYLENOL [Suspect]
     Dosage: DF
  9. EXCEDRIN (MIGRAINE) [Suspect]
     Dosage: DF
  10. SINUS AID [Suspect]
     Dosage: DF

REACTIONS (2)
  - CORONARY ARTERY OCCLUSION [None]
  - MYOCARDIAL INFARCTION [None]
